FAERS Safety Report 7517675-0 (Version None)
Quarter: 2011Q2

REPORT INFORMATION
  Report Type: 
  Country: None (occurrence: None)
  Receive Date: 20110602
  Receipt Date: 20110523
  Transmission Date: 20111010
  Serious: Yes (Hospitalization)
  Sender: FDA-Public Use
  Company Number: US-BIOGENIDEC-2009BI041048

PATIENT
  Age: 52 Year
  Sex: Female

DRUGS (3)
  1. AVONEX [Suspect]
     Route: 030
     Dates: start: 20030101, end: 20110301
  2. AVONEX [Suspect]
     Indication: MULTIPLE SCLEROSIS
     Route: 030
     Dates: start: 20001024, end: 20030101
  3. AVONEX [Suspect]
     Route: 030
     Dates: start: 20001001

REACTIONS (5)
  - CELLULITIS [None]
  - H1N1 INFLUENZA [None]
  - WOUND INFECTION STAPHYLOCOCCAL [None]
  - NAIL INJURY [None]
  - DRUG HYPERSENSITIVITY [None]
